FAERS Safety Report 25049892 (Version 1)
Quarter: 2025Q1

REPORT INFORMATION
  Report Type: Spontaneous
  Country: US (occurrence: US)
  Receive Date: 20250307
  Receipt Date: 20250307
  Transmission Date: 20250409
  Serious: Yes (Death, Other)
  Sender: AUROBINDO
  Company Number: US-AUROBINDO-AUR-APL-2025-011822

PATIENT
  Age: 76 Year
  Sex: Male

DRUGS (5)
  1. CLOZAPINE [Suspect]
     Active Substance: CLOZAPINE
     Indication: Product used for unknown indication
     Route: 065
  2. ARIPIPRAZOLE [Concomitant]
     Active Substance: ARIPIPRAZOLE
     Indication: Schizophrenia
     Route: 065
  3. ZOLOFT [Concomitant]
     Active Substance: SERTRALINE HYDROCHLORIDE
     Indication: Depression
     Route: 065
  4. BENZTROPINE [Concomitant]
     Active Substance: BENZTROPINE
     Indication: Extrapyramidal disorder
     Route: 065
  5. FLONASE [Concomitant]
     Active Substance: FLUTICASONE PROPIONATE
     Indication: Product used for unknown indication
     Route: 065

REACTIONS (3)
  - Death [Fatal]
  - Sepsis [Unknown]
  - Pneumonia [Unknown]
